FAERS Safety Report 10027799 (Version 2)
Quarter: 2014Q1

REPORT INFORMATION
  Report Type: Spontaneous
  Country: FR (occurrence: FR)
  Receive Date: 20140321
  Receipt Date: 20140321
  Transmission Date: 20141002
  Serious: Yes (Hospitalization)
  Sender: FDA-Public Use
  Company Number: FR-BAYER-2013-120865

PATIENT
  Age: 17 Year
  Sex: Female

DRUGS (1)
  1. ULTRAVIST [Suspect]
     Indication: COMPUTERISED TOMOGRAM ABDOMEN
     Dosage: 60 ML, ONCE
     Route: 042
     Dates: start: 20131003, end: 20131003

REACTIONS (3)
  - Nasal obstruction [Recovered/Resolved]
  - Urticaria [Recovered/Resolved]
  - Nasal discomfort [Recovered/Resolved]
